FAERS Safety Report 19590602 (Version 2)
Quarter: 2022Q4

REPORT INFORMATION
  Report Type: Spontaneous
  Country: US (occurrence: US)
  Receive Date: 20210722
  Receipt Date: 20221121
  Transmission Date: 20230113
  Serious: Yes (Other)
  Sender: FDA-Public Use
  Company Number: US-SA-2021SA240506

PATIENT
  Age: 50 Year
  Sex: Male

DRUGS (1)
  1. ZANTAC [Suspect]
     Active Substance: RANITIDINE HYDROCHLORIDE
     Indication: Dyspepsia
     Dosage: 75 MG, FREQUENCY OTHER
     Dates: start: 201602, end: 201910

REACTIONS (1)
  - Prostate cancer stage III [Unknown]

NARRATIVE: CASE EVENT DATE: 20190214
